FAERS Safety Report 8699787 (Version 2)
Quarter: 2012Q4

REPORT INFORMATION
  Report Type: 
  Country: US (occurrence: US)
  Receive Date: 20120802
  Receipt Date: 20120926
  Transmission Date: 20130627
  Serious: Yes (Other)
  Sender: FDA-Public Use
  Company Number: US-JNJFOC-20120714102

PATIENT
  Age: 75 Year
  Sex: Male
  Weight: 102.06 kg

DRUGS (9)
  1. MOTRIN IB [Suspect]
     Route: 048
  2. MOTRIN IB [Suspect]
     Indication: PAIN
     Dosage: 200mg/caplet, 2 caplets, once daily as needed
     Route: 048
     Dates: start: 20120722, end: 20120724
  3. LISINOPRIL/HCTZ [Suspect]
     Indication: HYPERTENSION
     Dosage: 10/12.5 mg once daily
     Route: 065
  4. MOTRIN [Suspect]
     Indication: PRODUCT USED FOR UNKNOWN INDICATION
     Route: 048
  5. YEAST [Concomitant]
     Indication: BLOOD CHOLESTEROL INCREASED
     Route: 065
  6. COD LIVER OIL [Concomitant]
     Indication: ROUTINE HEALTH MAINTENANCE
     Route: 065
  7. AVANDIA [Concomitant]
     Indication: DIABETES MELLITUS
     Route: 065
  8. FLOMAX [Concomitant]
  9. FISH OIL [Concomitant]

REACTIONS (3)
  - Blood pressure decreased [Not Recovered/Not Resolved]
  - Micturition frequency decreased [Unknown]
  - Therapeutic response unexpected [Unknown]
